FAERS Safety Report 7444880-4 (Version None)
Quarter: 2011Q2

REPORT INFORMATION
  Report Type: 
  Country: None (occurrence: None)
  Receive Date: 20110429
  Receipt Date: 20110418
  Transmission Date: 20111010
  Serious: Yes (Other)
  Sender: FDA-Public Use
  Company Number: PHFR2011GB02715

PATIENT
  Sex: Female

DRUGS (1)
  1. TEGRETOL [Suspect]
     Dosage: FOETAL DRUG EXPOSURE VIA FATHER

REACTIONS (2)
  - DRUG EXPOSURE DURING PREGNANCY [None]
  - ABORTION SPONTANEOUS [None]
